FAERS Safety Report 25377692 (Version 1)
Quarter: 2025Q2

REPORT INFORMATION
  Report Type: Spontaneous
  Country: DE (occurrence: DE)
  Receive Date: 20250530
  Receipt Date: 20250530
  Transmission Date: 20250716
  Serious: Yes (Hospitalization, Other)
  Sender: TEVA
  Company Number: None

PATIENT
  Sex: Male

DRUGS (1)
  1. METOPROLOL [Suspect]
     Active Substance: METOPROLOL
     Indication: Postoperative analgesia
     Dosage: 40 DROPS OF METAMIZOLE 500 MG/ML 3 TIMES DAILY
     Route: 065
     Dates: start: 202502

REACTIONS (4)
  - Postoperative abscess [Unknown]
  - Agranulocytosis [Unknown]
  - Leukopenia [Unknown]
  - Intentional product misuse [Unknown]

NARRATIVE: CASE EVENT DATE: 20250301
